FAERS Safety Report 19150446 (Version 1)
Quarter: 2021Q2

REPORT INFORMATION
  Report Type: Spontaneous
  Country: JP (occurrence: JP)
  Receive Date: 20210418
  Receipt Date: 20210418
  Transmission Date: 20210717
  Serious: Yes (Other)
  Sender: FDA-Public Use
  Company Number: JP-AMGEN-JPNSP2021058017

PATIENT
  Age: 19 Year
  Sex: Male

DRUGS (1)
  1. RANMARK [Suspect]
     Active Substance: DENOSUMAB
     Indication: BONE GIANT CELL TUMOUR
     Dosage: 120 MG, DAY0, DAY28, DAY56
     Route: 058

REACTIONS (1)
  - Bone giant cell tumour [Unknown]
